FAERS Safety Report 21571785 (Version 7)
Quarter: 2023Q2

REPORT INFORMATION
  Report Type: Spontaneous
  Country: MX (occurrence: MX)
  Receive Date: 20221109
  Receipt Date: 20230622
  Transmission Date: 20230722
  Serious: Yes (Hospitalization, Other)
  Sender: FDA-Public Use
  Company Number: MX-BEH-2022149312

PATIENT
  Age: 44 Year
  Sex: Female
  Weight: 54 kg

DRUGS (6)
  1. HIZENTRA [Suspect]
     Active Substance: HUMAN IMMUNOGLOBULIN G
     Indication: Chronic inflammatory demyelinating polyradiculoneuropathy
     Dosage: 16 GRAM, QW
     Route: 058
     Dates: start: 20220705, end: 202212
  2. HIZENTRA [Suspect]
     Active Substance: HUMAN IMMUNOGLOBULIN G
     Dosage: 20 GRAM, QW (5 DAYS OF THE WK: MON TO FRI)
     Route: 058
     Dates: start: 202212
  3. HIZENTRA [Suspect]
     Active Substance: HUMAN IMMUNOGLOBULIN G
     Dosage: 0.4 GRAM/ KILOGRAM
     Route: 058
     Dates: start: 20230420, end: 20230420
  4. HUMAN IMMUNOGLOBULIN G [Suspect]
     Active Substance: HUMAN IMMUNOGLOBULIN G
     Indication: Chronic inflammatory demyelinating polyradiculoneuropathy
     Dosage: 55 GRAM
     Route: 065
  5. HUMAN IMMUNOGLOBULIN G [Suspect]
     Active Substance: HUMAN IMMUNOGLOBULIN G
     Dosage: 1 GRAM/KILOGRAM
     Route: 042
  6. HUMAN IMMUNOGLOBULIN G [Suspect]
     Active Substance: HUMAN IMMUNOGLOBULIN G
     Dosage: 2 GRAM/ KILOGRAM
     Route: 042

REACTIONS (14)
  - Dermatitis acneiform [Not Recovered/Not Resolved]
  - Chronic inflammatory demyelinating polyradiculoneuropathy [Unknown]
  - Muscular weakness [Unknown]
  - Paraesthesia [Unknown]
  - Insurance issue [Unknown]
  - Headache [Unknown]
  - Therapy interrupted [Unknown]
  - Dermatitis acneiform [Recovering/Resolving]
  - Drug ineffective [Unknown]
  - Asthenia [Unknown]
  - Dermatitis acneiform [Recovering/Resolving]
  - Vertigo [Recovering/Resolving]
  - Dermatitis acneiform [Recovering/Resolving]
  - Vertigo [Unknown]

NARRATIVE: CASE EVENT DATE: 20220705
